FAERS Safety Report 8118545-X (Version None)
Quarter: 2011Q4

REPORT INFORMATION
  Report Type: 
  Country: None (occurrence: None)
  Receive Date: 20111227
  Receipt Date: 20111017
  Transmission Date: 20120403
  Serious: No
  Sender: FDA-Public Use
  Company Number: PHEH2011US06987

PATIENT
  Sex: Female

DRUGS (1)
  1. GILENYA [Suspect]
     Dosage: 0.5 MG, QD
     Dates: start: 20110922

REACTIONS (2)
  - ABDOMINAL PAIN UPPER [None]
  - BACK PAIN [None]
